FAERS Safety Report 14679307 (Version 3)
Quarter: 2020Q3

REPORT INFORMATION
  Report Type: Spontaneous
  Country: US (occurrence: US)
  Receive Date: 20180326
  Receipt Date: 20200901
  Transmission Date: 20201102
  Serious: No
  Sender: FDA-Public Use
  Company Number: US-PFIZER INC-2018124155

PATIENT
  Age: 73 Year
  Sex: Male
  Weight: 97.52 kg

DRUGS (3)
  1. CHANTIX [Suspect]
     Active Substance: VARENICLINE TARTRATE
     Indication: SMOKING CESSATION THERAPY
     Dosage: 0.5 MG, 2X/DAY (QUANTITY FOR 7 DAYS)
  2. CHANTIX [Suspect]
     Active Substance: VARENICLINE TARTRATE
     Dosage: 5 MG
  3. CHANTIX [Suspect]
     Active Substance: VARENICLINE TARTRATE
     Dosage: 0.5 MG

REACTIONS (5)
  - Memory impairment [Unknown]
  - Confusional state [Unknown]
  - Drug ineffective [Unknown]
  - Product dispensing error [Unknown]
  - Hypoacusis [Not Recovered/Not Resolved]
